FAERS Safety Report 13653544 (Version 1)
Quarter: 2017Q2

REPORT INFORMATION
  Report Type: Spontaneous
  Country: US (occurrence: US)
  Receive Date: 20170614
  Receipt Date: 20170614
  Transmission Date: 20170830
  Serious: No
  Sender: FDA-Public Use
  Company Number: US-ROCHE-1290726

PATIENT
  Sex: Male

DRUGS (12)
  1. HYDROCHLOROTHIAZIDE/LISINOPRIL [Concomitant]
     Active Substance: HYDROCHLOROTHIAZIDE\LISINOPRIL
  2. LORAZEPAM. [Concomitant]
     Active Substance: LORAZEPAM
  3. VITAMIN B1 [Concomitant]
     Active Substance: THIAMINE HYDROCHLORIDE
  4. OLANZAPINE. [Concomitant]
     Active Substance: OLANZAPINE
  5. XELODA [Suspect]
     Active Substance: CAPECITABINE
     Indication: COLON CANCER
     Dosage: 2 WEEKS ON AND 1 WEEK OFF
     Route: 048
     Dates: start: 20130725
  6. AMLODIPINE [Concomitant]
     Active Substance: AMLODIPINE BESYLATE
  7. CLARITIN-D NOS [Concomitant]
     Active Substance: LORATADINE\PSEUDOEPHEDRINE SULFATE
  8. CLONIDINE. [Concomitant]
     Active Substance: CLONIDINE
  9. MUCINEX [Concomitant]
     Active Substance: GUAIFENESIN
  10. ASPIRIN. [Concomitant]
     Active Substance: ASPIRIN
  11. FOLIC ACID. [Concomitant]
     Active Substance: FOLIC ACID
  12. LASIX [Concomitant]
     Active Substance: FUROSEMIDE

REACTIONS (1)
  - Cellulitis [Not Recovered/Not Resolved]
